FAERS Safety Report 12518895 (Version 2)
Quarter: 2016Q3

REPORT INFORMATION
  Report Type: Report from Study
  Country: US (occurrence: US)
  Receive Date: 20160630
  Receipt Date: 20160818
  Transmission Date: 20161109
  Serious: No
  Sender: FDA-Public Use
  Company Number: US-AMGEN-USASL2016080131

PATIENT
  Age: 52 Year
  Sex: Female

DRUGS (1)
  1. ENBREL [Suspect]
     Active Substance: ETANERCEPT
     Indication: RHEUMATOID ARTHRITIS
     Dosage: UNK UNK, QWK
     Route: 065
     Dates: start: 20160301

REACTIONS (15)
  - Memory impairment [Not Recovered/Not Resolved]
  - Vasodilatation [Unknown]
  - Hypoaesthesia [Unknown]
  - Wrong technique in product usage process [Unknown]
  - Pain [Recovering/Resolving]
  - Pain in extremity [Unknown]
  - Fibromyalgia [Unknown]
  - Insomnia [Unknown]
  - Joint swelling [Unknown]
  - Dyspnoea [Not Recovered/Not Resolved]
  - Contusion [Recovered/Resolved]
  - Panic attack [Unknown]
  - Accidental exposure to product [Unknown]
  - Injection site inflammation [Not Recovered/Not Resolved]
  - Inflammation [Unknown]

NARRATIVE: CASE EVENT DATE: 2016
